FAERS Safety Report 7322152-6 (Version None)
Quarter: 2011Q1

REPORT INFORMATION
  Report Type: 
  Country: None (occurrence: None)
  Receive Date: 20110228
  Receipt Date: 20110221
  Transmission Date: 20110831
  Serious: Yes (Other)
  Sender: FDA-Public Use
  Company Number: PL-BAXTER-2011BH003398

PATIENT
  Age: 36 Year
  Sex: Male

DRUGS (3)
  1. CARBOPLATIN [Suspect]
     Indication: TESTICULAR GERM CELL CANCER
     Route: 042
     Dates: start: 20080901, end: 20080101
  2. CYCLOPHOSPHAMIDE [Suspect]
     Indication: TESTICULAR GERM CELL CANCER
     Route: 042
     Dates: start: 20080901, end: 20080101
  3. ETOPOSIDE [Suspect]
     Indication: TESTICULAR GERM CELL CANCER
     Route: 042
     Dates: start: 20080901, end: 20080101

REACTIONS (1)
  - NODAL ARRHYTHMIA [None]
